FAERS Safety Report 7030136-0 (Version None)
Quarter: 2010Q4

REPORT INFORMATION
  Report Type: 
  Country: None (occurrence: None)
  Receive Date: 20101006
  Receipt Date: 20100923
  Transmission Date: 20110411
  Serious: No
  Sender: FDA-Public Use
  Company Number: US-B.I. PHARMACEUTICALS,INC./RIDGEFIELD-2010-BP-10810BP

PATIENT
  Age: 56 Year
  Sex: Female

DRUGS (5)
  1. MIRAPEX [Suspect]
     Indication: RESTLESS LEGS SYNDROME
     Dosage: 2 MG
     Route: 048
     Dates: start: 20050101, end: 20100201
  2. CYMBALTA [Suspect]
     Indication: PAIN MANAGEMENT
  3. ABILIFY [Suspect]
     Indication: PAIN MANAGEMENT
  4. SYNTHROID [Concomitant]
     Indication: HYPOTHYROIDISM
  5. PERCOCET [Concomitant]
     Indication: PAIN MANAGEMENT

REACTIONS (5)
  - HERPES ZOSTER [None]
  - PILONIDAL CYST [None]
  - SLEEP APNOEA SYNDROME [None]
  - TARDIVE DYSKINESIA [None]
  - URINARY INCONTINENCE [None]
